FAERS Safety Report 9732061 (Version 1)
Quarter: 2013Q4

REPORT INFORMATION
  Report Type: Spontaneous
  Country: US (occurrence: US)
  Receive Date: 20131205
  Receipt Date: 20131205
  Transmission Date: 20140711
  Serious: No
  Sender: FDA-Public Use
  Company Number: US-ASTRAZENECA-2013SE87810

PATIENT
  Age: 24858 Day
  Sex: Female
  Weight: 104.3 kg

DRUGS (4)
  1. NEXIUM [Suspect]
     Indication: GASTROOESOPHAGEAL REFLUX DISEASE
     Dosage: DAILY
     Route: 048
     Dates: start: 20130919, end: 20130928
  2. NORVAST [Concomitant]
     Indication: BLOOD CHOLESTEROL ABNORMAL
     Dates: start: 2013, end: 2013
  3. LOSARTIN/HCTC [Concomitant]
     Indication: BLOOD PRESSURE ABNORMAL
     Dates: start: 2013, end: 2013
  4. LOSARTIN/HCTC [Concomitant]
     Indication: CARDIAC DISORDER
     Dates: start: 2013, end: 2013

REACTIONS (1)
  - Headache [Not Recovered/Not Resolved]
